FAERS Safety Report 10060476 (Version 2)
Quarter: 2014Q2

REPORT INFORMATION
  Report Type: Spontaneous
  Country: US (occurrence: US)
  Receive Date: 20140404
  Receipt Date: 20140611
  Transmission Date: 20141212
  Serious: No
  Sender: FDA-Public Use
  Company Number: US-009507513-1404USA003531

PATIENT
  Age: 64 Year
  Sex: Female
  Weight: 57.14 kg

DRUGS (2)
  1. CLARITIN [Suspect]
     Indication: SINUS DISORDER
     Dosage: 10 MG, QD
     Route: 048
     Dates: start: 20140317, end: 20140319
  2. CLARITIN [Suspect]
     Dosage: UNK

REACTIONS (3)
  - Drug ineffective [Unknown]
  - Drug ineffective for unapproved indication [Unknown]
  - Product packaging issue [Unknown]
